FAERS Safety Report 9131296 (Version 1)
Quarter: 2013Q1

REPORT INFORMATION
  Report Type: Spontaneous
  Country: US (occurrence: US)
  Receive Date: 20130301
  Receipt Date: 20130301
  Transmission Date: 20140127
  Serious: No
  Sender: FDA-Public Use
  Company Number: US-BAYER-2013-025145

PATIENT
  Age: 85 Year
  Sex: Male
  Weight: 91 kg

DRUGS (7)
  1. ALEVE CAPLET/TABLET,MIDOL EXTENDED RELIEF CAPLET [Suspect]
     Dosage: 2 DF, BID
     Route: 048
     Dates: start: 20130210
  2. AROCET [Concomitant]
  3. VITAMIN A [Concomitant]
  4. SELENIUM [Concomitant]
  5. VITAMIN D [Concomitant]
  6. VITAMIN E [Concomitant]
  7. VITAMIN B [Concomitant]

REACTIONS (1)
  - Overdose [None]
